FAERS Safety Report 5489025-5 (Version None)
Quarter: 2007Q4

REPORT INFORMATION
  Report Type: 
  Country: None (occurrence: None)
  Receive Date: 20071017
  Receipt Date: 20071012
  Transmission Date: 20080405
  Serious: Yes (Death)
  Sender: FDA-Public Use
  Company Number: US-ABBOTT-07P-163-0420682-00

PATIENT
  Sex: Male

DRUGS (2)
  1. NORVIR [Suspect]
     Indication: HIV INFECTION
     Route: 048
     Dates: end: 20071011
  2. APTIVUS [Suspect]
     Indication: HIV INFECTION
     Route: 048
     Dates: end: 20071011

REACTIONS (1)
  - ROAD TRAFFIC ACCIDENT [None]
